FAERS Safety Report 7726283-8 (Version None)
Quarter: 2011Q3

REPORT INFORMATION
  Report Type: 
  Country: None (occurrence: None)
  Receive Date: 20110831
  Receipt Date: 20110817
  Transmission Date: 20111222
  Serious: Yes (Hospitalization, Other)
  Sender: FDA-Public Use
  Company Number: CIP11000503

PATIENT
  Age: 70 Year
  Sex: Male
  Weight: 78.6 kg

DRUGS (27)
  1. ACTONEL [Suspect]
     Dosage: 35 MG ONCE WEEKLY, ORAL
     Route: 048
     Dates: start: 20020912, end: 20060101
  2. PREDNISONE [Concomitant]
  3. FOSAMAX [Suspect]
     Indication: OSTEOPOROSIS
     Dosage: 40 MG WEEKLY, ORAL
     Route: 048
  4. HYDROCODONE BITARTRATE + ACETAMINOPHEN [Concomitant]
  5. PROSCAR [Concomitant]
  6. ZOCOR [Concomitant]
  7. HYDROMET (METHYLDOPA) [Concomitant]
  8. AMBIEN [Concomitant]
  9. SKELAXIN [Concomitant]
  10. FEXOFENADINE HCL [Concomitant]
  11. FLOMAX [Concomitant]
  12. NEURONTIN [Concomitant]
  13. QUININE SULFATE (QUININE SULFATE) [Concomitant]
  14. ANUCORT-HC (HYDROCORTISONE ACETATE) [Concomitant]
  15. OXYCODONE AND ACETAMINOPHEN [Concomitant]
  16. OXYCONTIN [Concomitant]
  17. CLARINEX (LORATADINE, PSEUDOEPHEDRINE SULFATE) [Concomitant]
  18. DIAZEPAM [Concomitant]
  19. ACTONEL [Suspect]
     Dosage: 5 MG DAILY, ORAL
     Route: 048
     Dates: start: 20010101, end: 20020912
  20. ARTHROTEC [Concomitant]
  21. NEXIUM [Concomitant]
  22. NASACORT AQ (TRIAMCINOLONE ACETONIDE) [Concomitant]
  23. TOPROL-XL [Concomitant]
  24. NASONEX [Concomitant]
  25. DIOVAN HCT [Concomitant]
  26. TRAZODONE HCL [Concomitant]
  27. METHOCARBAMOL [Concomitant]

REACTIONS (17)
  - ANAEMIA POSTOPERATIVE [None]
  - LIMB ASYMMETRY [None]
  - JOINT INJURY [None]
  - FEMUR FRACTURE [None]
  - GAIT DISTURBANCE [None]
  - PATHOLOGICAL FRACTURE [None]
  - ARTHROPATHY [None]
  - FALL [None]
  - IMMOBILE [None]
  - DEVICE BREAKAGE [None]
  - BONE GRAFT [None]
  - JOINT INSTABILITY [None]
  - DEVICE FAILURE [None]
  - FRACTURE NONUNION [None]
  - CONDITION AGGRAVATED [None]
  - ARTHRALGIA [None]
  - URINARY RETENTION POSTOPERATIVE [None]
